FAERS Safety Report 17072692 (Version 1)
Quarter: 2019Q4

REPORT INFORMATION
  Report Type: Spontaneous
  Country: US (occurrence: US)
  Receive Date: 20191125
  Receipt Date: 20191125
  Transmission Date: 20200122
  Serious: No
  Sender: FDA-Public Use
  Company Number: US-PFIZER INC-2019505886

PATIENT
  Sex: Female

DRUGS (1)
  1. ZITHROMAX [Suspect]
     Active Substance: AZITHROMYCIN DIHYDRATE
     Indication: SINUSITIS
     Dosage: UNK

REACTIONS (5)
  - Insomnia [Unknown]
  - Abdominal discomfort [Unknown]
  - Anxiety [Unknown]
  - Abdominal distension [Unknown]
  - Muscle spasms [Unknown]
